APPROVED DRUG PRODUCT: PHENTERMINE HYDROCHLORIDE
Active Ingredient: PHENTERMINE HYDROCHLORIDE
Strength: 30MG
Dosage Form/Route: TABLET;ORAL
Application: A088605 | Product #001
Applicant: SANDOZ INC
Approved: Sep 28, 1987 | RLD: No | RS: No | Type: DISCN